FAERS Safety Report 15540304 (Version 1)
Quarter: 2018Q4

REPORT INFORMATION
  Report Type: Spontaneous
  Country: US (occurrence: US)
  Receive Date: 20181016
  Receipt Date: 20181016
  Transmission Date: 20190205
  Serious: Yes (Hospitalization)
  Sender: FDA-Public Use
  Company Number: None

PATIENT
  Age: 42 Year
  Sex: Female
  Weight: 77.11 kg

DRUGS (1)
  1. MIDODRINE 2.5MG TABLETS [Suspect]
     Active Substance: MIDODRINE
     Indication: HYPOTENSION
     Dosage: ?          QUANTITY:1 DF DOSAGE FORM;?
     Route: 048
     Dates: start: 20180812, end: 20180827

REACTIONS (11)
  - Dry mouth [None]
  - Dizziness [None]
  - Head injury [None]
  - Fatigue [None]
  - Loss of consciousness [None]
  - Diarrhoea [None]
  - Pollakiuria [None]
  - Hypersomnia [None]
  - Visual impairment [None]
  - Loss of personal independence in daily activities [None]
  - Sinus headache [None]

NARRATIVE: CASE EVENT DATE: 20180812
